FAERS Safety Report 24054318 (Version 1)
Quarter: 2024Q3

REPORT INFORMATION
  Report Type: Spontaneous
  Country: US (occurrence: None)
  Receive Date: 20240705
  Receipt Date: 20240705
  Transmission Date: 20241016
  Serious: Yes (Other)
  Sender: ASTRAZENECA
  Company Number: 2024A149957

PATIENT
  Sex: Male

DRUGS (1)
  1. FARXIGA [Suspect]
     Active Substance: DAPAGLIFLOZIN PROPANEDIOL
     Route: 048

REACTIONS (6)
  - Thrombosis [Unknown]
  - Swelling [Unknown]
  - Insomnia [Unknown]
  - Limb discomfort [Unknown]
  - Neuropathy peripheral [Unknown]
  - Back disorder [Unknown]
